FAERS Safety Report 7561430-2 (Version None)
Quarter: 2011Q2

REPORT INFORMATION
  Report Type: 
  Country: None (occurrence: None)
  Receive Date: 20110621
  Receipt Date: 20100729
  Transmission Date: 20111010
  Serious: No
  Sender: FDA-Public Use
  Company Number: US-ASTRAZENECA-2008UW03834

PATIENT
  Age: 81 Year
  Sex: Female
  Weight: 50.3 kg

DRUGS (9)
  1. HYDROCHLOROTHIAZIDE [Concomitant]
  2. SYNTHROID [Concomitant]
  3. ALBUTEROL SULFATE AUTOHALER [Concomitant]
  4. ATACAND [Concomitant]
  5. FOSAMAX [Concomitant]
  6. PULMICORT FLEXHALER [Suspect]
     Indication: ASTHMA
     Dosage: 120 DOSE INHALER
     Route: 055
     Dates: start: 20080220
  7. PULMICORT FLEXHALER [Suspect]
     Dosage: 720 MCGS TWO PUFFS TWICE DAILY
     Route: 055
     Dates: start: 20080101
  8. SINGULAIR [Concomitant]
  9. ZOLOFT [Concomitant]

REACTIONS (7)
  - STOMATITIS [None]
  - ORAL CANDIDIASIS [None]
  - OROPHARYNGEAL PAIN [None]
  - NAUSEA [None]
  - DYSPNOEA [None]
  - PRODUCT TASTE ABNORMAL [None]
  - LEUKOPLAKIA ORAL [None]
